FAERS Safety Report 8144208-0 (Version None)
Quarter: 2012Q1

REPORT INFORMATION
  Report Type: 
  Country: None (occurrence: None)
  Receive Date: 20120217
  Receipt Date: 20120120
  Transmission Date: 20120608
  Serious: Yes (Hospitalization, Other)
  Sender: FDA-Public Use
  Company Number: FR-PFIZER INC-2012023994

PATIENT
  Age: 57 Year
  Sex: Female

DRUGS (6)
  1. LYRICA [Suspect]
     Dosage: UNK
     Dates: start: 20110725, end: 20110817
  2. PANTOPRAZOLE [Suspect]
     Dosage: UNK
     Dates: start: 20110718, end: 20110817
  3. LEVOFLOXACIN [Suspect]
     Indication: ANTIBIOTIC THERAPY
     Dosage: UNK
     Dates: start: 20110707, end: 20110810
  4. RIFADIN [Suspect]
     Indication: ANTIBIOTIC THERAPY
     Dosage: UNK
     Dates: start: 20110707, end: 20110810
  5. ACUPAN [Suspect]
     Dosage: UNK
     Dates: start: 20110722, end: 20110813
  6. CLONAZEPAM [Suspect]
     Dosage: UNK
     Dates: start: 20110720, end: 20110817

REACTIONS (1)
  - DRUG RASH WITH EOSINOPHILIA AND SYSTEMIC SYMPTOMS [None]
